FAERS Safety Report 21377246 (Version 1)
Quarter: 2022Q3

REPORT INFORMATION
  Report Type: Spontaneous
  Country: JP (occurrence: JP)
  Receive Date: 20220926
  Receipt Date: 20220926
  Transmission Date: 20221027
  Serious: Yes (Other)
  Sender: FDA-Public Use
  Company Number: JP-PFIZER INC-202201177948

PATIENT
  Age: 42 Year
  Sex: Female
  Weight: 51 kg

DRUGS (3)
  1. LORAZEPAM [Suspect]
     Active Substance: LORAZEPAM
     Dosage: UNK
     Route: 048
  2. RISPERIDONE [Suspect]
     Active Substance: RISPERIDONE
     Dosage: UNK
     Route: 048
  3. PALIPERIDONE [Suspect]
     Active Substance: PALIPERIDONE
     Dosage: UNK
     Route: 048

REACTIONS (6)
  - Altered state of consciousness [Unknown]
  - Toxicity to various agents [Unknown]
  - Memory impairment [Unknown]
  - Dizziness [Unknown]
  - Feeling abnormal [Unknown]
  - Somnolence [Unknown]
